FAERS Safety Report 10142584 (Version 3)
Quarter: 2014Q3

REPORT INFORMATION
  Report Type: Spontaneous
  Country: IT (occurrence: None)
  Receive Date: 20140425
  Receipt Date: 20140723
  Transmission Date: 20150326
  Serious: Yes (Hospitalization)
  Sender: FDA-Public Use
  Company Number: AUR-APL-2014-05005

PATIENT
  Age: 46 Year
  Sex: Female

DRUGS (3)
  1. AMOXICILLINA TABLETS 1G (AMOXICILLIN) TABLET, 1G [Suspect]
     Active Substance: AMOXICILLIN
     Indication: PHARYNGITIS
     Dosage: 1 DF, TOTAL, ORAL
     Route: 048
     Dates: start: 20140328, end: 20140328
  2. MORNIFLUMATE [Suspect]
     Active Substance: MORNIFLUMATE
     Indication: PHARYNGITIS
     Dosage: 1 DF, TOTAL, ORAL
     Route: 048
     Dates: start: 20140328, end: 20140328
  3. MORNIFLUMATE [Suspect]
     Active Substance: MORNIFLUMATE
     Indication: PYREXIA
     Dosage: 1 DF, TOTAL, ORAL
     Route: 048
     Dates: start: 20140328, end: 20140328

REACTIONS (5)
  - Dyspnoea [None]
  - Diarrhoea [None]
  - Urticaria [None]
  - Dizziness [None]
  - Nausea [None]

NARRATIVE: CASE EVENT DATE: 20140328
